FAERS Safety Report 5290747-X (Version None)
Quarter: 2007Q2

REPORT INFORMATION
  Report Type: 
  Country: None (occurrence: None)
  Receive Date: 20070405
  Receipt Date: 20070405
  Transmission Date: 20071010
  Serious: Yes (Other)
  Sender: FDA-Public Use
  Company Number: None

PATIENT
  Sex: Male
  Weight: 116.9 kg

DRUGS (6)
  1. GEMCITABINE HCL [Suspect]
     Indication: SARCOMA
     Dosage: 2400 MG    D1, D3    IV
     Route: 042
     Dates: start: 20070227, end: 20070306
  2. CAPECITABINE [Suspect]
     Indication: SARCOMA
     Dosage: 1150 MG  BID,  D1-14   PO
     Route: 048
     Dates: start: 20070227, end: 20070313
  3. LOVENOX [Concomitant]
  4. NEXIUM [Concomitant]
  5. TYLENOL [Concomitant]
  6. 2 UNITS PRBCS + 1 BAG OF PLATELETS [Concomitant]

REACTIONS (1)
  - NEUTROPHIL COUNT DECREASED [None]
